FAERS Safety Report 9532107 (Version 1)
Quarter: 2013Q1

REPORT INFORMATION
  Report Type: Spontaneous
  Country: US (occurrence: None)
  Receive Date: 20130329
  Receipt Date: 20130329
  Transmission Date: 20140127
  Serious: No
  Sender: FDA-Public Use
  Company Number: 1000042122

PATIENT
  Age: 21 Year
  Sex: Female

DRUGS (5)
  1. LINZESS (LINACLOTIDE) (145 MICROGRAM CAPSULES) [Suspect]
     Indication: CONSTIPATION
     Route: 048
     Dates: start: 20130123
  2. PREVACID (LANSOPRAZOLE) (LANSOPRAZOLE) [Concomitant]
  3. TRILEPTAL (OXCARBAZEPINE) (OXCARBAZEPINE) [Concomitant]
  4. DEPO PROVERA (MEDROXYPROGESTERONE ACETATE) [Concomitant]
  5. ESTRADIOL (ESTRADIOL) (ESTRADIOL) [Concomitant]

REACTIONS (1)
  - Faecal incontinence [None]
